FAERS Safety Report 20651183 (Version 1)
Quarter: 2022Q1

REPORT INFORMATION
  Report Type: Spontaneous
  Country: US (occurrence: US)
  Receive Date: 20220329
  Receipt Date: 20220329
  Transmission Date: 20220424
  Serious: Yes (Other)
  Sender: FDA-Public Use
  Company Number: US-BEH-2022143369

PATIENT
  Age: 70 Year
  Sex: Female

DRUGS (1)
  1. HIZENTRA [Suspect]
     Active Substance: HUMAN IMMUNOGLOBULIN G
     Indication: Hypogammaglobulinaemia
     Dosage: 10 GRAM, QW
     Route: 058
     Dates: start: 202105

REACTIONS (6)
  - COVID-19 [Unknown]
  - Nausea [Unknown]
  - Pain [Unknown]
  - Migraine [Unknown]
  - Weight decreased [Unknown]
  - Infusion site haemorrhage [Unknown]

NARRATIVE: CASE EVENT DATE: 20220201
